FAERS Safety Report 9748900 (Version 2)
Quarter: 2013Q4

REPORT INFORMATION
  Report Type: Spontaneous
  Country: US (occurrence: US)
  Receive Date: 20131212
  Receipt Date: 20131212
  Transmission Date: 20140711
  Serious: Yes (Other)
  Sender: FDA-Public Use
  Company Number: US-INCYTE CORPORATION-2013IN000949

PATIENT
  Age: 67 Year
  Sex: Male
  Weight: 75.28 kg

DRUGS (15)
  1. JAKAFI [Suspect]
     Indication: MYELOFIBROSIS
     Dosage: 25 MG, BID
     Route: 048
     Dates: end: 20130503
  2. JAKAFI [Suspect]
     Dosage: 10 MG, BID
     Route: 048
     Dates: start: 201305, end: 2013
  3. JAKAFI [Suspect]
     Dosage: 5 MG, BID
     Route: 048
     Dates: start: 20130814, end: 2013
  4. JAKAFI [Suspect]
     Dosage: 10 MG, BID
     Route: 048
     Dates: start: 2013
  5. LOVASTATIN [Concomitant]
     Dosage: 20 MG, UNK
  6. TRAZODONE [Concomitant]
     Dosage: 50 MG, UNK
  7. PROZAC [Concomitant]
     Dosage: 40 MG, UNK
  8. OMEPRAZOLE [Concomitant]
     Dosage: 20 MG, UNK
  9. ALLOPURINOL [Concomitant]
     Dosage: 100 MG, UNK
  10. FISH OIL ULTRA [Concomitant]
     Dosage: 1000 MG, UNK
  11. VITAMIN C SR [Concomitant]
     Dosage: 500 MG, UNK
  12. MULTIVITAMIN [Concomitant]
  13. ACETAMINOPHEN EXTRA STRENGTH [Concomitant]
     Dosage: 500 MG, PRN
  14. LASIX [Concomitant]
     Dosage: 20 MG, QD
     Route: 048
  15. SEROQUEL XR [Concomitant]
     Dosage: 150 MG, UNK

REACTIONS (6)
  - Blood count abnormal [Unknown]
  - Haemoglobin decreased [Unknown]
  - Haematocrit decreased [Unknown]
  - Insomnia [Unknown]
  - Bipolar disorder [Unknown]
  - Discomfort [Unknown]
